FAERS Safety Report 5035534-2 (Version None)
Quarter: 2006Q2

REPORT INFORMATION
  Report Type: 
  Country: None (occurrence: None)
  Receive Date: 20060526
  Receipt Date: 20060308
  Transmission Date: 20061013
  Serious: No
  Sender: FDA-Public Use
  Company Number: 222880

PATIENT
  Age: 52 Year
  Sex: Female

DRUGS (3)
  1. RAPTIVA [Suspect]
     Indication: PSORIASIS
     Dosage: 0.5 ML, 1/WEEK, SUBCUTANEOUS
     Route: 058
  2. TAR SHAMPOO (TAR NOS) [Concomitant]
  3. DIOVAN [Concomitant]

REACTIONS (3)
  - ALOPECIA [None]
  - NAIL DISORDER [None]
  - SKIN EXFOLIATION [None]
